FAERS Safety Report 7458308-1 (Version None)
Quarter: 2011Q2

REPORT INFORMATION
  Report Type: 
  Country: None (occurrence: None)
  Receive Date: 20110504
  Receipt Date: 20110427
  Transmission Date: 20111010
  Serious: Yes (Other)
  Sender: FDA-Public Use
  Company Number: JP-PFIZER INC-2011024261

PATIENT
  Age: 66 Year

DRUGS (8)
  1. CAMPTOSAR [Suspect]
     Indication: LARGE INTESTINE CARCINOMA
     Route: 041
  2. OXALIPLATIN [Suspect]
     Indication: LARGE INTESTINE CARCINOMA
     Route: 041
  3. BEVACIZUMAB [Suspect]
     Indication: LARGE INTESTINE CARCINOMA
     Route: 041
  4. LEUCOVORIN CALCIUM [Suspect]
     Indication: LARGE INTESTINE CARCINOMA
     Route: 041
  5. FLUOROURACIL [Suspect]
     Route: 041
  6. CETUXIMAB [Suspect]
     Indication: LARGE INTESTINE CARCINOMA
     Route: 041
  7. FOLINIC ACID [Suspect]
     Indication: LARGE INTESTINE CARCINOMA
  8. FLUOROURACIL [Suspect]
     Indication: LARGE INTESTINE CARCINOMA
     Route: 040

REACTIONS (3)
  - NEUROPATHY PERIPHERAL [None]
  - STOMATITIS [None]
  - NEUTROPENIA [None]
